FAERS Safety Report 18533848 (Version 1)
Quarter: 2020Q4

REPORT INFORMATION
  Report Type: Spontaneous
  Country: US (occurrence: US)
  Receive Date: 20201121
  Receipt Date: 20201121
  Transmission Date: 20210114
  Serious: Yes (Hospitalization)
  Sender: FDA-Public Use
  Company Number: None

PATIENT
  Sex: Male

DRUGS (11)
  1. TADALAFIL. [Suspect]
     Active Substance: TADALAFIL
     Indication: CHRONIC OBSTRUCTIVE PULMONARY DISEASE
     Route: 048
     Dates: start: 20200623
  2. ATORVASTATIN [Concomitant]
     Active Substance: ATORVASTATIN
  3. POTASSIUM CHLORIDE. [Concomitant]
     Active Substance: POTASSIUM CHLORIDE
  4. INVOKANA [Concomitant]
     Active Substance: CANAGLIFLOZIN
  5. JANUVIA [Concomitant]
     Active Substance: SITAGLIPTIN PHOSPHATE
  6. ELIQUIS [Concomitant]
     Active Substance: APIXABAN
  7. GLIMEPIRIDE. [Concomitant]
     Active Substance: GLIMEPIRIDE
  8. TORSEMIDE. [Concomitant]
     Active Substance: TORSEMIDE
  9. OPSUMIT [Concomitant]
     Active Substance: MACITENTAN
  10. PREGABALIN. [Concomitant]
     Active Substance: PREGABALIN
  11. SOTALOL. [Concomitant]
     Active Substance: SOTALOL

REACTIONS (2)
  - Blood disorder [None]
  - Poisoning [None]
